FAERS Safety Report 5506681-3 (Version None)
Quarter: 2007Q4

REPORT INFORMATION
  Report Type: 
  Country: None (occurrence: None)
  Receive Date: 20071101
  Receipt Date: 20071005
  Transmission Date: 20080405
  Serious: Yes (Hospitalization)
  Sender: FDA-Public Use
  Company Number: 60447

PATIENT
  Age: 51 Year
  Sex: Male

DRUGS (1)
  1. IBUPROFEN [Suspect]
     Indication: ANALGESIC THERAPY

REACTIONS (3)
  - APHASIA [None]
  - MENINGITIS ASEPTIC [None]
  - PLEOCYTOSIS [None]
